FAERS Safety Report 14403503 (Version 3)
Quarter: 2018Q1

REPORT INFORMATION
  Report Type: Spontaneous
  Country: JP (occurrence: JP)
  Receive Date: 20180117
  Receipt Date: 20180228
  Transmission Date: 20180509
  Serious: Yes (Hospitalization)
  Sender: FDA-Public Use
  Company Number: JP-PFIZER INC-2018017986

PATIENT
  Age: 78 Year
  Sex: Female

DRUGS (7)
  1. DALACIN 150MG [Suspect]
     Active Substance: CLINDAMYCIN HYDROCHLORIDE
     Indication: WOUND INFECTION
     Dosage: 150 MG, 3X/DAY
     Route: 048
     Dates: start: 20180109, end: 20180111
  2. NOVAMIN (PROCHLORPERAZINE MALEATE) [Concomitant]
     Active Substance: PROCHLORPERAZINE MALEATE
     Dosage: 1 DF, 2X/DAY
     Route: 048
  3. METHYCOBAL [Concomitant]
     Active Substance: METHYLCOBALAMIN
     Dosage: 1 DF, 3X/DAY
     Route: 048
  4. JUVELA N [Concomitant]
     Active Substance: TOCOPHERYL NICOTINATE, D-.ALPHA.
     Dosage: 1 DF, 3X/DAY
     Route: 048
  5. TRAMCET [Concomitant]
     Active Substance: ACETAMINOPHEN\TRAMADOL
     Dosage: 1 DF, 2X/DAY
     Route: 048
     Dates: start: 20170207
  6. TAKECAB [Concomitant]
     Active Substance: VONOPRAZAN FUMURATE
     Dosage: 1 DF, 1X/DAY
     Route: 048
     Dates: start: 20160510
  7. CELECOX [Concomitant]
     Active Substance: CELECOXIB
     Dosage: 1 DF, 2X/DAY
     Route: 048

REACTIONS (5)
  - Pyrexia [Recovered/Resolved]
  - Pruritus [Recovering/Resolving]
  - Conjunctival hyperaemia [Unknown]
  - Decreased appetite [Recovered/Resolved]
  - Generalised erythema [Recovering/Resolving]

NARRATIVE: CASE EVENT DATE: 201801
